FAERS Safety Report 10059612 (Version 4)
Quarter: 2014Q2

REPORT INFORMATION
  Report Type: Report from Study
  Country: BR (occurrence: BR)
  Receive Date: 20140404
  Receipt Date: 20140516
  Transmission Date: 20141212
  Serious: Yes (Other)
  Sender: FDA-Public Use
  Company Number: PHHY2014BR038924

PATIENT
  Age: 57 Year
  Sex: Male
  Weight: 73 kg

DRUGS (3)
  1. SANDOSTATIN LAR [Suspect]
     Indication: CARCINOID TUMOUR
     Dosage: 20 MG, QMO
     Dates: start: 2005, end: 201312
  2. SANDOSTATIN LAR [Suspect]
     Dosage: 30 MG, QMO
     Dates: start: 20140327
  3. CHEMOTHERAPEUTICS [Suspect]
     Indication: HEPATIC NEOPLASM
     Dosage: UNK UKN, UNK

REACTIONS (10)
  - Optic nerve neoplasm [Not Recovered/Not Resolved]
  - Spinal cord neoplasm [Not Recovered/Not Resolved]
  - Lung neoplasm [Not Recovered/Not Resolved]
  - Hepatic neoplasm [Unknown]
  - Malignant neoplasm progression [Unknown]
  - Cholecystitis infective [Unknown]
  - Fatigue [Unknown]
  - Headache [Unknown]
  - Diarrhoea [Unknown]
  - Drug ineffective [Unknown]
